FAERS Safety Report 5452828-7 (Version None)
Quarter: 2007Q3

REPORT INFORMATION
  Report Type: 
  Country: None (occurrence: None)
  Receive Date: 20070914
  Receipt Date: 20070905
  Transmission Date: 20080115
  Serious: Yes (Life-Threatening, Hospitalization)
  Sender: FDA-Public Use
  Company Number: FR-JNJFOC-20070901503

PATIENT
  Sex: Female
  Weight: 9.5 kg

DRUGS (6)
  1. HALDOL [Suspect]
     Indication: DRUG USE FOR UNKNOWN INDICATION
     Route: 015
  2. SERESTA [Suspect]
     Indication: DRUG USE FOR UNKNOWN INDICATION
     Route: 015
  3. PARKINANE LP [Suspect]
     Indication: DRUG USE FOR UNKNOWN INDICATION
     Route: 015
  4. IMOVANE [Suspect]
     Indication: DRUG USE FOR UNKNOWN INDICATION
  5. MEPRONIZINE [Suspect]
     Route: 015
  6. MEPRONIZINE [Suspect]
     Indication: DRUG USE FOR UNKNOWN INDICATION
     Route: 015

REACTIONS (15)
  - BRADYCARDIA NEONATAL [None]
  - CAESAREAN SECTION [None]
  - COLONIC STENOSIS [None]
  - DRUG EXPOSURE DURING PREGNANCY [None]
  - FOETAL DISTRESS SYNDROME [None]
  - FOETAL HEART RATE DECELERATION [None]
  - HYPOGLYCAEMIA NEONATAL [None]
  - HYPOTONIA NEONATAL [None]
  - HYPOVENTILATION NEONATAL [None]
  - NECROTISING COLITIS [None]
  - NEONATAL DISORDER [None]
  - PATENT DUCTUS ARTERIOSUS [None]
  - PREMATURE BABY [None]
  - PREMATURE RUPTURE OF MEMBRANES [None]
  - SHOCK [None]
